FAERS Safety Report 6232866-7 (Version None)
Quarter: 2009Q2

REPORT INFORMATION
  Report Type: 
  Country: None (occurrence: None)
  Receive Date: 20090617
  Receipt Date: 20090401
  Transmission Date: 20091009
  Serious: No
  Sender: FDA-Public Use
  Company Number: US-ASTRAZENECA-2009UW05279

PATIENT
  Age: 766 Month
  Sex: Female

DRUGS (5)
  1. FASLODEX [Suspect]
     Route: 030
  2. ZOMETA [Concomitant]
  3. FEMARA [Concomitant]
  4. PROCHLORPERAZINE [Concomitant]
     Route: 048
  5. PRILOSEC [Concomitant]
     Route: 048

REACTIONS (4)
  - ABDOMINAL DISCOMFORT [None]
  - DECREASED APPETITE [None]
  - FATIGUE [None]
  - INJECTION SITE PAIN [None]
